FAERS Safety Report 17140669 (Version 2)
Quarter: 2020Q1

REPORT INFORMATION
  Report Type: Spontaneous
  Country: US (occurrence: US)
  Receive Date: 20191211
  Receipt Date: 20200212
  Transmission Date: 20200409
  Serious: Yes (Other)
  Sender: FDA-Public Use
  Company Number: US-PACIRA-201900423

PATIENT

DRUGS (2)
  1. EXPAREL [Suspect]
     Active Substance: BUPIVACAINE
     Indication: NERVE BLOCK
     Dosage: 20 ML OF 13.3 MG/ML AND 20 ML OF 0.25% STANDART BUPIVACAINE
  2. BUPIVACAINE. [Suspect]
     Active Substance: BUPIVACAINE
     Indication: NERVE BLOCK
     Dosage: 20 ML OF 0.25% STANDARD BUPIVACAINE AND 20 ML OF 13.3 MG/ML EXPAREL

REACTIONS (1)
  - Ileus [Unknown]
